FAERS Safety Report 9391674 (Version 7)
Quarter: 2014Q3

REPORT INFORMATION
  Report Type: Spontaneous
  Country: US (occurrence: US)
  Receive Date: 20130709
  Receipt Date: 20140801
  Transmission Date: 20150326
  Serious: Yes (Death, Hospitalization, Disabling)
  Sender: FDA-Public Use
  Company Number: US-GLAXOSMITHKLINE-A1031439A

PATIENT
  Sex: Female

DRUGS (2)
  1. AVANDIA [Suspect]
     Active Substance: ROSIGLITAZONE MALEATE
     Indication: DIABETES MELLITUS
     Dosage: 4MG UNKNOWN
     Route: 048
     Dates: start: 200007, end: 200906
  2. AVANDAMET [Suspect]
     Active Substance: METFORMIN HYDROCHLORIDE\ROSIGLITAZONE MALEATE
     Indication: TYPE 2 DIABETES MELLITUS
     Route: 048
     Dates: start: 200407, end: 200412

REACTIONS (9)
  - Respiratory failure [Fatal]
  - Renal failure acute [Fatal]
  - Pulmonary hypertension [Unknown]
  - Cardiac failure congestive [Unknown]
  - Pneumonia [Unknown]
  - Coronary artery disease [Unknown]
  - Diastolic dysfunction [Unknown]
  - Ischaemic cardiomyopathy [Unknown]
  - Pulmonary arterial hypertension [Unknown]
